FAERS Safety Report 4839753-7 (Version None)
Quarter: 2005Q4

REPORT INFORMATION
  Report Type: 
  Country: None (occurrence: None)
  Receive Date: 20051129
  Receipt Date: 20050810
  Transmission Date: 20060501
  Serious: No
  Sender: FDA-Public Use
  Company Number: US-GLAXOSMITHKLINE-A0569724A

PATIENT
  Age: 33 Year
  Sex: Female

DRUGS (6)
  1. WELLBUTRIN SR [Suspect]
     Indication: DEPRESSION
     Dosage: 150MG TWICE PER DAY
     Route: 048
     Dates: start: 20050729
  2. ELAVIL [Concomitant]
  3. LISINOPRIL [Concomitant]
  4. TRIVORA-21 [Concomitant]
  5. PROTONIX [Concomitant]
  6. CRANBERRY [Concomitant]
     Route: 048

REACTIONS (2)
  - FEAR [None]
  - PANIC ATTACK [None]
